FAERS Safety Report 9351448 (Version 1)
Quarter: 2013Q2

REPORT INFORMATION
  Report Type: Spontaneous
  Country: US (occurrence: US)
  Receive Date: 20130617
  Receipt Date: 20130617
  Transmission Date: 20140414
  Serious: Yes (Death)
  Sender: FDA-Public Use
  Company Number: US-NAPPMUNDI-USA-2013-0103373

PATIENT
  Age: 30 Year
  Sex: Male

DRUGS (1)
  1. BUTRANS [Suspect]
     Indication: SUBSTANCE ABUSE
     Dosage: UNKNOWN
     Route: 062

REACTIONS (1)
  - Death [Fatal]
